FAERS Safety Report 6694359-2 (Version None)
Quarter: 2010Q2

REPORT INFORMATION
  Report Type: 
  Country: None (occurrence: None)
  Receive Date: 20100423
  Receipt Date: 20100420
  Transmission Date: 20101027
  Serious: Yes (Hospitalization)
  Sender: FDA-Public Use
  Company Number: DE-WYE-G05992410

PATIENT
  Sex: Male

DRUGS (9)
  1. TORISEL [Suspect]
     Indication: METASTATIC RENAL CELL CARCINOMA
     Route: 042
     Dates: start: 20080516, end: 20080818
  2. TORISEL [Suspect]
     Route: 042
     Dates: start: 20080829
  3. SYMBICORT [Concomitant]
  4. BONDIOL [Concomitant]
  5. SPIRIVA [Concomitant]
  6. AMLODIPINE [Concomitant]
  7. TORSEMIDE [Concomitant]
  8. FENISTIL [Concomitant]
     Indication: PREMEDICATION
     Dosage: 8 MG PRIOR TO TORISEL ADMINISTRATION
     Route: 042
     Dates: start: 20080516
  9. IODIDE [Concomitant]

REACTIONS (1)
  - GASTROINTESTINAL HAEMORRHAGE [None]
